FAERS Safety Report 23684467 (Version 1)
Quarter: 2024Q1

REPORT INFORMATION
  Report Type: Spontaneous
  Country: US (occurrence: US)
  Receive Date: 20240328
  Receipt Date: 20240328
  Transmission Date: 20240409
  Serious: No
  Sender: FDA-Public Use
  Company Number: US-SMPA-2024SUN000232AA

PATIENT

DRUGS (2)
  1. LATUDA [Suspect]
     Active Substance: LURASIDONE HYDROCHLORIDE
     Indication: Social anxiety disorder
     Dosage: UNK
     Route: 048
  2. LURASIDONE HYDROCHLORIDE [Suspect]
     Active Substance: LURASIDONE HYDROCHLORIDE
     Dosage: UNK
     Route: 048

REACTIONS (2)
  - Pain [Unknown]
  - Off label use [Unknown]
